FAERS Safety Report 18520272 (Version 1)
Quarter: 2020Q4

REPORT INFORMATION
  Report Type: Spontaneous
  Country: AR (occurrence: AR)
  Receive Date: 20201118
  Receipt Date: 20201118
  Transmission Date: 20210114
  Serious: Yes (Hospitalization)
  Sender: FDA-Public Use
  Company Number: AR-PFIZER INC-2020455032

PATIENT
  Age: 55 Year
  Sex: Female

DRUGS (2)
  1. IBRANCE [Suspect]
     Active Substance: PALBOCICLIB
     Dosage: 125 MG, UNSPECIFIED DOSING FREQUENCY
  2. LETROZOL [Concomitant]
     Active Substance: LETROZOLE

REACTIONS (3)
  - Cardiac failure [Unknown]
  - Respiratory arrest [Unknown]
  - Blood disorder [Unknown]
